FAERS Safety Report 15434433 (Version 1)
Quarter: 2018Q3

REPORT INFORMATION
  Report Type: Spontaneous
  Country: JP (occurrence: JP)
  Receive Date: 20180927
  Receipt Date: 20180927
  Transmission Date: 20181010
  Serious: Yes (Other)
  Sender: FDA-Public Use
  Company Number: JP-TEVA-2018-JP-956984

PATIENT
  Age: 44 Year
  Sex: Female

DRUGS (11)
  1. BEVACIZUMAB. [Suspect]
     Active Substance: BEVACIZUMAB
     Indication: COLON CANCER METASTATIC
     Dosage: ADMINISTERED IN 8 CYCLES, MFOLFOX6 REGIMEN
     Route: 065
     Dates: start: 201606
  2. CAPECITABINE. [Suspect]
     Active Substance: CAPECITABINE
     Indication: COLON CANCER METASTATIC
     Dosage: XELOX REGIMEN
     Route: 065
     Dates: start: 201505
  3. FOLINIC ACID [Suspect]
     Active Substance: LEUCOVORIN
     Indication: COLON CANCER METASTATIC
     Dosage: XELOX REGIMEN
     Route: 065
     Dates: start: 201505
  4. OXALIPLATIN. [Suspect]
     Active Substance: OXALIPLATIN
     Indication: COLON CANCER METASTATIC
     Dosage: XELOX REGIMEN
     Route: 065
     Dates: start: 201505
  5. FLUOROURACIL. [Suspect]
     Active Substance: FLUOROURACIL
     Indication: COLON CANCER METASTATIC
     Dosage: ADMINISTERED IN 7 CYCLES, FOLFIRI REGIMEN
     Route: 065
     Dates: start: 201601
  6. OXALIPLATIN. [Suspect]
     Active Substance: OXALIPLATIN
     Indication: COLON CANCER METASTATIC
     Dosage: ADMINISTERED IN 8 CYCLES, MFOLFOX6 REGIMEN
     Route: 065
     Dates: start: 201606
  7. FOLINIC ACID [Suspect]
     Active Substance: LEUCOVORIN
     Dosage: ADMINISTERED IN 8 CYCLES, MFOLFOX6 REGIMEN
     Route: 065
     Dates: start: 201606
  8. FOLINIC ACID [Suspect]
     Active Substance: LEUCOVORIN
     Dosage: ADMINISTERED IN 7 CYCLES, FOLFIRI REGIMEN
     Route: 065
     Dates: start: 201601
  9. 5?FLUOROURACIL [Suspect]
     Active Substance: FLUOROURACIL
     Indication: COLON CANCER METASTATIC
     Dosage: ADMINISTERED IN 8 CYCLES, MFOLFOX6 REGIMEN
     Route: 065
     Dates: start: 201606
  10. PANITUMUMAB [Suspect]
     Active Substance: PANITUMUMAB
     Indication: COLON CANCER METASTATIC
     Dosage: ADMINISTERED IN 7 CYCLES
     Route: 065
     Dates: start: 201601
  11. IRINOTECAN HYDROCHLORIDE. [Suspect]
     Active Substance: IRINOTECAN HYDROCHLORIDE
     Indication: COLON CANCER METASTATIC
     Dosage: ADMINISTERED IN 7 CYCLES, FOLFIRI REGIMEN
     Route: 065
     Dates: start: 201601

REACTIONS (5)
  - Hypertension [Recovered/Resolved]
  - Reversible cerebral vasoconstriction syndrome [Recovering/Resolving]
  - Posterior reversible encephalopathy syndrome [Recovering/Resolving]
  - Hemiparesis [Recovering/Resolving]
  - Cerebral infarction [Recovering/Resolving]

NARRATIVE: CASE EVENT DATE: 201609
